FAERS Safety Report 5221811-9 (Version None)
Quarter: 2007Q1

REPORT INFORMATION
  Report Type: 
  Country: None (occurrence: None)
  Receive Date: 20070129
  Receipt Date: 20070116
  Transmission Date: 20070707
  Serious: No
  Sender: FDA-Public Use
  Company Number: 2006GB01968

PATIENT
  Age: 35 Year
  Sex: Female

DRUGS (5)
  1. QUETIAPINE FUMARATE [Suspect]
     Indication: PSYCHOTIC DISORDER
     Route: 048
  2. QUETIAPINE FUMARATE [Suspect]
     Route: 048
     Dates: start: 20060301
  3. LEVOTHYROXINE SODIUM [Concomitant]
     Indication: HYPOTHYROIDISM
     Dosage: FOR YEARS
     Route: 048
  4. WARFARIN SODIUM [Concomitant]
     Indication: CEREBRAL INFARCTION
     Dosage: 2MG THREE DAYS A WEEK AND 3MG FOUR DAYS A WEEK. FOR YEARS.
     Route: 048
  5. ATORVASTATIN CALCIUM [Concomitant]
     Indication: CEREBRAL INFARCTION
     Dosage: FOR YEARS
     Route: 048

REACTIONS (3)
  - ILL-DEFINED DISORDER [None]
  - SOMNOLENCE [None]
  - SYNCOPE [None]
